FAERS Safety Report 4297059-1 (Version None)
Quarter: 2004Q1

REPORT INFORMATION
  Report Type: 
  Country: None (occurrence: None)
  Receive Date: 20040126
  Receipt Date: 20030915
  Transmission Date: 20041129
  Serious: No
  Sender: FDA-Public Use
  Company Number: USA030947311

PATIENT
  Sex: Male
  Weight: 102 kg

DRUGS (6)
  1. PROZAC [Suspect]
     Indication: SLEEP DISORDER
     Dates: start: 19980101
  2. STRATTERA [Suspect]
     Indication: SLEEP DISORDER
     Dosage: 60 MG/DAY
     Dates: start: 20030201
  3. CELEBREX [Concomitant]
  4. NEURONTIN [Concomitant]
  5. PREDNISONE [Concomitant]
  6. PROVIGIL [Concomitant]

REACTIONS (6)
  - AMNESIA [None]
  - DISTURBANCE IN ATTENTION [None]
  - DRUG INEFFECTIVE [None]
  - EJACULATION DISORDER [None]
  - FATIGUE [None]
  - SEXUAL DYSFUNCTION [None]
